FAERS Safety Report 25726933 (Version 4)
Quarter: 2025Q3

REPORT INFORMATION
  Report Type: Spontaneous
  Country: US (occurrence: US)
  Receive Date: 20250826
  Receipt Date: 20250911
  Transmission Date: 20251020
  Serious: No
  Sender: PFIZER
  Company Number: US-PFIZER INC-202500167796

PATIENT
  Age: 39 Year
  Sex: Female

DRUGS (20)
  1. SOLU-CORTEF [Suspect]
     Active Substance: HYDROCORTISONE SODIUM SUCCINATE
     Indication: Adrenocortical insufficiency acute
     Dates: start: 20250821
  2. SOLU-CORTEF [Suspect]
     Active Substance: HYDROCORTISONE SODIUM SUCCINATE
     Indication: Addison^s disease
  3. ADDERALL [Concomitant]
     Active Substance: AMPHETAMINE ASPARTATE\AMPHETAMINE SULFATE\DEXTROAMPHETAMINE SACCHARATE\DEXTROAMPHETAMINE SULFATE
     Dosage: 2 DF, 2X/DAY (ORAL TABLET, TWO TABLETS TWICE A DAY/15 MILLIGRAM)
     Route: 048
  4. AMITRIPTYLINE [Concomitant]
     Active Substance: AMITRIPTYLINE
     Dosage: 50 MG, 1X/DAY (ORAL TABLET, ONE TABLET DAILY AT BED TIME)
     Route: 048
  5. FLUDROCORTISONE [Concomitant]
     Active Substance: FLUDROCORTISONE
     Dosage: 0.1 MG, 1X/DAY
  6. GABAPENTIN [Concomitant]
     Active Substance: GABAPENTIN
     Dosage: 600 MG, 3X/DAY (ONE TABLET, THREE TIMES A DAY)
  7. GUANFACINE [Concomitant]
     Active Substance: GUANFACINE
     Dosage: 3 MG, 1X/DAY
  8. LEVOTHYROXINE [Concomitant]
     Active Substance: LEVOTHYROXINE
     Dosage: 75 MG, 1X/DAY (ONCE A DAY)
     Route: 048
  9. OXCARBAZEPINE [Concomitant]
     Active Substance: OXCARBAZEPINE
     Dosage: 600 MG, 1X/DAY (600 MILLIGRAM, ONCE AT BEDTIME)
  10. OXCARBAZEPINE [Concomitant]
     Active Substance: OXCARBAZEPINE
     Dosage: 150 MG, 2X/DAY ( ONE TABLET TWICE A DAY/ONE IS FOR THE MORNING AND)
     Route: 048
  11. PREDNISONE [Concomitant]
     Active Substance: PREDNISONE
     Route: 048
  12. NALTREXONE [Concomitant]
     Active Substance: NALTREXONE
     Dosage: 6 MG, 1X/DAY
  13. TOPIRAMATE [Concomitant]
     Active Substance: TOPIRAMATE
     Dosage: 25 MG, 2X/DAY (THREE TABLET, TWICE A DAY)
  14. DICLOFENAC SODIUM [Concomitant]
     Active Substance: DICLOFENAC SODIUM
     Route: 048
  15. CYCLOBENZAPRINE [Concomitant]
     Active Substance: CYCLOBENZAPRINE
     Route: 048
  16. NURTEC ODT [Concomitant]
     Active Substance: RIMEGEPANT SULFATE
  17. ZOLPIDEM [Concomitant]
     Active Substance: ZOLPIDEM TARTRATE
     Dosage: 10 MG, 1X/DAY (ONCE AT BEDTIME)
  18. CYANOCOBALAMIN [Concomitant]
     Active Substance: CYANOCOBALAMIN
     Dosage: UNK, WEEKLY
  19. AJOVY [Concomitant]
     Active Substance: FREMANEZUMAB-VFRM
     Dosage: UNK, MONTHLY
     Route: 030
  20. BOTOX [Concomitant]
     Active Substance: ONABOTULINUMTOXINA
     Indication: Migraine

REACTIONS (15)
  - Muscle rigidity [Unknown]
  - Muscle spasms [Unknown]
  - Dehydration [Unknown]
  - Heart rate increased [Unknown]
  - Vomiting [Unknown]
  - Disturbance in attention [Unknown]
  - Disorientation [Unknown]
  - Balance disorder [Unknown]
  - Fatigue [Unknown]
  - Myalgia [Unknown]
  - Muscular weakness [Unknown]
  - Vertigo [Unknown]
  - Diarrhoea [Unknown]
  - Nausea [Not Recovered/Not Resolved]
  - Product preparation issue [Unknown]

NARRATIVE: CASE EVENT DATE: 20250801
